FAERS Safety Report 24454847 (Version 2)
Quarter: 2024Q4

REPORT INFORMATION
  Report Type: Report from Study
  Country: US (occurrence: US)
  Receive Date: 20241017
  Receipt Date: 20241018
  Transmission Date: 20250114
  Serious: No
  Sender: ROCHE
  Company Number: US-ROCHE-3475299

PATIENT
  Age: 30 Year
  Sex: Female

DRUGS (1)
  1. RITUXAN [Suspect]
     Active Substance: RITUXIMAB
     Indication: Multiple sclerosis
     Dosage: LAST DATE OF TREATMENT - 03/NOV/2022
     Route: 065
     Dates: end: 20221103

REACTIONS (3)
  - Maternal exposure timing unspecified [Unknown]
  - Off label use [Unknown]
  - No adverse event [Unknown]
